FAERS Safety Report 6332611-0 (Version None)
Quarter: 2009Q3

REPORT INFORMATION
  Report Type: 
  Country: None (occurrence: None)
  Receive Date: 20090828
  Receipt Date: 20090817
  Transmission Date: 20100115
  Serious: Yes (Hospitalization)
  Sender: FDA-Public Use
  Company Number: JP-ROCHE-648963

PATIENT
  Sex: Female
  Weight: 43 kg

DRUGS (12)
  1. PEGASYS [Suspect]
     Route: 058
     Dates: start: 20080306, end: 20080612
  2. PEGASYS [Suspect]
     Route: 058
     Dates: start: 20080619, end: 20080911
  3. PEGASYS [Suspect]
     Route: 058
     Dates: start: 20080918, end: 20081106
  4. PEGASYS [Suspect]
     Route: 058
     Dates: start: 20081211, end: 20090305
  5. PEGASYS [Suspect]
     Route: 058
     Dates: start: 20090416, end: 20090423
  6. PEGASYS [Suspect]
     Route: 058
     Dates: start: 20090430, end: 20090625
  7. COPEGUS [Suspect]
     Dosage: DIVIDED IN TWO DOSES.
     Route: 048
     Dates: start: 20080306, end: 20090625
  8. ADALAT CC [Concomitant]
     Dosage: DOSE FORM REPORTED:^SUSTAINED RELEASE TABLET^.
     Route: 048
  9. URSO 250 [Concomitant]
     Dosage: DOSE FORM REPORTED AS:^ORAL FORMULATION^ (NOT OTHERWISE SPECIFIED)
     Route: 048
  10. MUCOSTA [Concomitant]
     Dosage: DOSE FORM REPORTED AS:^ORAL FORMULATION^ (NOT OTHERWISE SPECIFIED)
     Route: 048
  11. AMOBAN [Concomitant]
     Route: 048
  12. HYPEN [Concomitant]
     Route: 048

REACTIONS (12)
  - BACK PAIN [None]
  - BRONCHITIS [None]
  - DECREASED APPETITE [None]
  - DUODENAL ULCER [None]
  - GASTRITIS EROSIVE [None]
  - GOITRE [None]
  - HAEMATEMESIS [None]
  - PYREXIA [None]
  - RETINAL HAEMORRHAGE [None]
  - RHEUMATOID ARTHRITIS [None]
  - THYROIDITIS [None]
  - VARICES OESOPHAGEAL [None]
